FAERS Safety Report 23740634 (Version 1)
Quarter: 2024Q2

REPORT INFORMATION
  Report Type: Other
  Country: FR (occurrence: FR)
  Receive Date: 20240415
  Receipt Date: 20240415
  Transmission Date: 20240716
  Serious: Yes (Hospitalization)
  Sender: FDA-Public Use
  Company Number: None

PATIENT

DRUGS (5)
  1. PAROXETINE [Suspect]
     Active Substance: PAROXETINE
     Indication: Product used for unknown indication
     Dosage: 280 MILLIGRAM
     Route: 048
     Dates: start: 20240213
  2. PANTOPRAZOLE [Suspect]
     Active Substance: PANTOPRAZOLE
     Indication: Product used for unknown indication
     Dosage: 1120 MILLIGRAM
     Route: 048
     Dates: start: 20240213
  3. ZOPICLONE [Suspect]
     Active Substance: ZOPICLONE
     Indication: Product used for unknown indication
     Dosage: 105 MILLIGRAM
     Route: 048
     Dates: start: 20240213
  4. LOXAPINE SUCCINATE [Suspect]
     Active Substance: LOXAPINE SUCCINATE
     Indication: Product used for unknown indication
     Dosage: 2500 MILLIGRAM
     Route: 048
     Dates: start: 20240213
  5. DIAZEPAM [Suspect]
     Active Substance: DIAZEPAM
     Indication: Product used for unknown indication
     Dosage: 900 MILLIGRAM
     Route: 048
     Dates: start: 20240213

REACTIONS (2)
  - Respiratory failure [Recovered/Resolved]
  - Coma [Recovered/Resolved]

NARRATIVE: CASE EVENT DATE: 20240213
